FAERS Safety Report 16713579 (Version 2)
Quarter: 2019Q3

REPORT INFORMATION
  Report Type: Report from Study
  Country: None (occurrence: BE)
  Receive Date: 20190819
  Receipt Date: 20190911
  Transmission Date: 20191004
  Serious: Yes (Hospitalization)
  Sender: FDA-Public Use
  Company Number: BE-ABBVIE-19K-013-2889566-00

PATIENT
  Sex: Male

DRUGS (9)
  1. PROLOPA [Concomitant]
     Active Substance: BENSERAZIDE\LEVODOPA
     Dosage: FORM STRENGTH: 200MG/50MG; RESCUE MEDICATION
  2. AZILECT [Concomitant]
     Active Substance: RASAGILINE MESYLATE
  3. DUODOPA [Suspect]
     Active Substance: CARBIDOPA\LEVODOPA
     Dosage: MD=10ML, CD=4ML/HR DURING 16HRS, ED=0ML
     Route: 050
     Dates: start: 20190418, end: 20190905
  4. AZILECT [Concomitant]
     Active Substance: RASAGILINE MESYLATE
     Indication: PARKINSON^S DISEASE
  5. DUODOPA [Suspect]
     Active Substance: CARBIDOPA\LEVODOPA
     Indication: PARKINSON^S DISEASE
     Dosage: MD=10ML, CD=3.5ML/HR DURING 16HRS, ED=4ML
     Route: 050
     Dates: start: 20180115, end: 20180223
  6. DUODOPA [Suspect]
     Active Substance: CARBIDOPA\LEVODOPA
     Dosage: DOSES CONTINUOUSLY MONITORED AND ADAPTED
     Route: 050
     Dates: start: 20180223, end: 20190418
  7. PROLOPA [Concomitant]
     Active Substance: BENSERAZIDE\LEVODOPA
     Indication: PARKINSON^S DISEASE
     Dosage: FORM STRENGTH: 200MG/50MG; UNIT DOSE: 1 TABLET
     Route: 048
  8. DUODOPA [Suspect]
     Active Substance: CARBIDOPA\LEVODOPA
     Dosage: MD=10ML, CD=4.2ML/HR DURING 16HRS, ED=0ML
     Route: 050
     Dates: start: 20190905
  9. PANTOMED (PANTOPRAZOLE SODIUM SESQUIHYDRATE) [Concomitant]
     Active Substance: PANTOPRAZOLE SODIUM
     Indication: PRODUCT USED FOR UNKNOWN INDICATION

REACTIONS (8)
  - Freezing phenomenon [Unknown]
  - Therapeutic product effect incomplete [Unknown]
  - Parkinson^s disease [Unknown]
  - Obsessive-compulsive disorder [Unknown]
  - General physical condition decreased [Unknown]
  - On and off phenomenon [Unknown]
  - Pneumonia [Unknown]
  - Orthostatic hypotension [Unknown]
